FAERS Safety Report 5448588-6 (Version None)
Quarter: 2007Q3

REPORT INFORMATION
  Report Type: 
  Country: None (occurrence: None)
  Receive Date: 20070905
  Receipt Date: 20070820
  Transmission Date: 20080115
  Serious: Yes (Other)
  Sender: FDA-Public Use
  Company Number: 2007US003829

PATIENT
  Age: 70 Year
  Sex: Female
  Weight: 67.5 kg

DRUGS (18)
  1. ALOXI [Suspect]
     Indication: PROPHYLAXIS OF NAUSEA AND VOMITING
     Dosage: 0.25 MG, QWK, IV BOLUS; 0.25 MG, QWK, IV BOLUS
     Route: 040
     Dates: start: 20060623, end: 20061124
  2. ALOXI [Suspect]
     Indication: PROPHYLAXIS OF NAUSEA AND VOMITING
     Dosage: 0.25 MG, QWK, IV BOLUS; 0.25 MG, QWK, IV BOLUS
     Route: 040
     Dates: start: 20070702, end: 20070820
  3. DECADRON [Suspect]
     Indication: PREMEDICATION
     Dosage: 10 MG, QWK, INTRAVENOUS; 20 MG, QWK, INTRAVENOUS; 10 MG, QWK, INTRAVENOUS
     Route: 042
     Dates: start: 20060623, end: 20061124
  4. DECADRON [Suspect]
     Indication: PREMEDICATION
     Dosage: 10 MG, QWK, INTRAVENOUS; 20 MG, QWK, INTRAVENOUS; 10 MG, QWK, INTRAVENOUS
     Route: 042
     Dates: start: 20070702, end: 20070716
  5. DECADRON [Suspect]
     Indication: PREMEDICATION
     Dosage: 10 MG, QWK, INTRAVENOUS; 20 MG, QWK, INTRAVENOUS; 10 MG, QWK, INTRAVENOUS
     Route: 042
     Dates: start: 20070806, end: 20070820
  6. TAXOL [Concomitant]
  7. CARBOPLATIN [Concomitant]
  8. ARANESP [Concomitant]
  9. TAGAMET /00397401/ (CIMETIDINE) [Concomitant]
  10. NEURONTIN [Concomitant]
  11. ELAVIL [Concomitant]
  12. PLAQUENIL /00072602/ (HYDROXYCHLOROQUINE PHOSPHATE) [Concomitant]
  13. SYNTHROID [Concomitant]
  14. GLIPIZIDE [Concomitant]
  15. GLUCOPHAGE /00082701/ (METFORMIN) [Concomitant]
  16. COUMADIN [Concomitant]
  17. LOVASTATIN [Concomitant]
  18. DETROL /01350201/ (TOLTERODINE) [Concomitant]

REACTIONS (9)
  - BLOOD PRESSURE SYSTOLIC INCREASED [None]
  - DIZZINESS [None]
  - HEART RATE INCREASED [None]
  - OXYGEN SATURATION DECREASED [None]
  - PULSE PRESSURE DECREASED [None]
  - RASH ERYTHEMATOUS [None]
  - SYNCOPE VASOVAGAL [None]
  - UNRESPONSIVE TO STIMULI [None]
  - VISION BLURRED [None]
